FAERS Safety Report 4485726-6 (Version None)
Quarter: 2004Q4

REPORT INFORMATION
  Report Type: 
  Country: None (occurrence: None)
  Receive Date: 20041026
  Receipt Date: 20041019
  Transmission Date: 20050328
  Serious: Yes (Other)
  Sender: FDA-Public Use
  Company Number: NL-GLAXOSMITHKLINE-B0349043A

PATIENT
  Age: 63 Year
  Sex: Male

DRUGS (7)
  1. AVANDIA [Suspect]
     Indication: DIABETES MELLITUS NON-INSULIN-DEPENDENT
     Dosage: 4MG PER DAY
     Dates: start: 20040819, end: 20040914
  2. XATRAL [Concomitant]
     Dosage: 10MG PER DAY
  3. SELOKEEN ZOC [Concomitant]
     Dosage: 100MG TWICE PER DAY
  4. AMARYL [Concomitant]
     Dosage: 3MG TWICE PER DAY
  5. METFORMIN HCL [Concomitant]
  6. ZESTRIL [Concomitant]
  7. ACETYLSALICYLIC ACID [Concomitant]

REACTIONS (3)
  - DYSPNOEA [None]
  - SENSATION OF HEAVINESS [None]
  - WEIGHT INCREASED [None]
